FAERS Safety Report 5781620-9 (Version None)
Quarter: 2008Q2

REPORT INFORMATION
  Report Type: 
  Country: None (occurrence: None)
  Receive Date: 20080623
  Receipt Date: 20080612
  Transmission Date: 20081010
  Serious: Yes (Other)
  Sender: FDA-Public Use
  Company Number: KR-JNJFOC-20080603034

PATIENT
  Age: 7 Decade
  Sex: Male

DRUGS (2)
  1. CONCERTA [Suspect]
     Indication: HEADACHE
     Route: 048
  2. THROMBOLYTIC [Concomitant]

REACTIONS (3)
  - OFF LABEL USE [None]
  - ORTHOSTATIC HYPOTENSION [None]
  - VERTIGO [None]
